FAERS Safety Report 12592848 (Version 1)
Quarter: 2016Q3

REPORT INFORMATION
  Report Type: Spontaneous
  Country: US (occurrence: US)
  Receive Date: 20160726
  Receipt Date: 20160726
  Transmission Date: 20161109
  Serious: No
  Sender: FDA-Public Use
  Company Number: US-GE HEALTHCARE MEDICAL DIAGNOSTICS-DATS-PR-1605S-0037

PATIENT

DRUGS (2)
  1. DATSCAN [Suspect]
     Active Substance: IODINE\IOFLUPANE I-123
     Indication: DIAGNOSTIC PROCEDURE
  2. DATSCAN [Suspect]
     Active Substance: IODINE\IOFLUPANE I-123
     Indication: PRODUCT USED FOR UNKNOWN INDICATION
     Dosage: DOSE NOT REPORTED
     Route: 065

REACTIONS (1)
  - Injection site pain [Unknown]
